FAERS Safety Report 7047580-8 (Version None)
Quarter: 2010Q4

REPORT INFORMATION
  Report Type: 
  Country: None (occurrence: None)
  Receive Date: 20101015
  Receipt Date: 20101004
  Transmission Date: 20110411
  Serious: Yes (Other)
  Sender: FDA-Public Use
  Company Number: MX-ELI_LILLY_AND_COMPANY-MX201010001053

PATIENT
  Age: 66 Year
  Sex: Male
  Weight: 89 kg

DRUGS (5)
  1. CIALIS [Suspect]
     Indication: ERECTILE DYSFUNCTION
     Dosage: 20 MG, AS NEEDED
     Route: 048
  2. GLIMETAL [Concomitant]
     Indication: DIABETES MELLITUS
     Dosage: UNK, DAILY (1/D)
     Route: 048
  3. COAPROVEL [Concomitant]
     Indication: HYPERTENSION
     Dosage: UNK, DAILY (1/D)
     Route: 048
  4. DAFLON /01026201/ [Concomitant]
     Indication: CARDIOVASCULAR DISORDER
     Dosage: UNK, DAILY (1/D)
     Route: 048
  5. VITAMINS [Concomitant]

REACTIONS (2)
  - BLINDNESS TRANSIENT [None]
  - HEADACHE [None]
